FAERS Safety Report 15961569 (Version 1)
Quarter: 2019Q1

REPORT INFORMATION
  Report Type: Spontaneous
  Country: US (occurrence: US)
  Receive Date: 20190122
  Receipt Date: 20190122
  Transmission Date: 20190417
  Serious: Yes (Hospitalization)
  Sender: FDA-Public Use
  Company Number: None

PATIENT
  Age: 70 Year
  Sex: Male

DRUGS (1)
  1. ATORVASTATIN [Suspect]
     Active Substance: ATORVASTATIN
     Indication: RHABDOMYOLYSIS
     Route: 048
     Dates: start: 20161014, end: 20181104

REACTIONS (1)
  - Rhabdomyolysis [None]

NARRATIVE: CASE EVENT DATE: 20181102
